FAERS Safety Report 16745515 (Version 1)
Quarter: 2019Q3

REPORT INFORMATION
  Report Type: Spontaneous
  Country: US (occurrence: US)
  Receive Date: 20190827
  Receipt Date: 20190827
  Transmission Date: 20191005
  Serious: No
  Sender: FDA-Public Use
  Company Number: US-PFIZER INC-2019365471

PATIENT
  Age: 79 Year
  Sex: Male

DRUGS (1)
  1. LYRICA [Suspect]
     Active Substance: PREGABALIN
     Indication: NEURALGIA
     Dosage: 75 MG, UNK (ONE CAPSULE 3 TIMES A DAY, SOMETIMES I TAKE A FOURTH, I ADD A BEDTIME DOSE)

REACTIONS (2)
  - Intentional product use issue [Unknown]
  - Drug ineffective [Unknown]
